FAERS Safety Report 7687384-6 (Version None)
Quarter: 2011Q3

REPORT INFORMATION
  Report Type: 
  Country: None (occurrence: None)
  Receive Date: 20110816
  Receipt Date: 20110810
  Transmission Date: 20111222
  Serious: Yes (Hospitalization)
  Sender: FDA-Public Use
  Company Number: US-SANOFI-AVENTIS-2011SA051491

PATIENT
  Sex: Female

DRUGS (3)
  1. LANTUS [Suspect]
     Indication: TYPE 2 DIABETES MELLITUS
     Dosage: DOSE:18 UNIT(S)
     Route: 058
  2. SOLOSTAR [Suspect]
     Indication: TYPE 2 DIABETES MELLITUS
  3. DRUG USED IN DIABETES [Concomitant]

REACTIONS (7)
  - NAUSEA [None]
  - CARDIAC OPERATION [None]
  - DIZZINESS [None]
  - MALAISE [None]
  - BLOOD GLUCOSE INCREASED [None]
  - VOMITING [None]
  - PALLOR [None]
